FAERS Safety Report 16035946 (Version 1)
Quarter: 2019Q1

REPORT INFORMATION
  Report Type: Spontaneous
  Country: US (occurrence: US)
  Receive Date: 20190305
  Receipt Date: 20190305
  Transmission Date: 20190418
  Serious: Yes (Hospitalization)
  Sender: FDA-Public Use
  Company Number: US-BAYER-2019-042712

PATIENT
  Sex: Male

DRUGS (1)
  1. ALIQOPA [Suspect]
     Active Substance: COPANLISIB
     Indication: B-CELL LYMPHOMA
     Dosage: 16 MG
     Route: 042

REACTIONS (1)
  - Hyperglycaemia [Recovered/Resolved]
